FAERS Safety Report 7167123-8 (Version None)
Quarter: 2010Q4

REPORT INFORMATION
  Report Type: 
  Country: None (occurrence: None)
  Receive Date: 20101202
  Receipt Date: 20101122
  Transmission Date: 20110411
  Serious: Yes (Other)
  Sender: FDA-Public Use
  Company Number: TRP_07412_2010

PATIENT
  Sex: Female
  Weight: 162 kg

DRUGS (9)
  1. INFERGEN [Suspect]
     Indication: HEPATITIS C
     Dosage: (15 P15 ?G  QD  SUBCUTANEOUS)
     Route: 058
     Dates: start: 20101029
  2. RIBAVIRIN [Suspect]
     Indication: HEPATITIS C
     Dosage: (600 MG, DAILY ORAL)
     Route: 048
     Dates: start: 20101029
  3. NOVOLOG [Suspect]
     Indication: DIABETES MELLITUS
     Dosage: (SLIDING SCALE, 40 UNITS SUBCUTANEOUS)
     Route: 058
     Dates: start: 19920101
  4. DILAUDID [Concomitant]
  5. LANTUS [Concomitant]
  6. SOMA [Concomitant]
  7. LORCET-HD [Concomitant]
  8. KLOR-CON [Concomitant]
  9. HYDROCHLOROTHIAZIDE [Concomitant]

REACTIONS (5)
  - BACK DISORDER [None]
  - INAPPROPRIATE SCHEDULE OF DRUG ADMINISTRATION [None]
  - INCORRECT DOSE ADMINISTERED [None]
  - MUSCLE SPASMS [None]
  - WRONG DRUG ADMINISTERED [None]
